FAERS Safety Report 6297215-7 (Version None)
Quarter: 2009Q3

REPORT INFORMATION
  Report Type: 
  Country: None (occurrence: None)
  Receive Date: 20090804
  Receipt Date: 20090804
  Transmission Date: 20100115
  Serious: No
  Sender: FDA-Public Use
  Company Number: None

PATIENT
  Sex: Female
  Weight: 103.4201 kg

DRUGS (1)
  1. EXFORGE HCT [Suspect]
     Indication: HYPERTENSION

REACTIONS (4)
  - HEART RATE INCREASED [None]
  - PALPITATIONS [None]
  - SKIN HAEMORRHAGE [None]
  - WEIGHT INCREASED [None]
